FAERS Safety Report 4736129-8 (Version None)
Quarter: 2005Q3

REPORT INFORMATION
  Report Type: 
  Country: None (occurrence: None)
  Receive Date: 20050729
  Receipt Date: 20050623
  Transmission Date: 20060218
  Serious: Yes (Disabling)
  Sender: FDA-Public Use
  Company Number: GXBR2005US01062

PATIENT
  Age: 35 Year
  Sex: Female
  Weight: 66.2 kg

DRUGS (2)
  1. RIBAVIRIN [Suspect]
     Indication: HEPATITIS C
     Dosage: 1000 MG, QD, ORAL
     Route: 048
     Dates: start: 20050424, end: 20050601
  2. PEG-INTRON [Suspect]
     Indication: HEPATITIS C
     Dosage: QW
     Dates: start: 20050424, end: 20050601

REACTIONS (3)
  - BLOOD POTASSIUM INCREASED [None]
  - MALAISE [None]
  - PAIN IN EXTREMITY [None]
